FAERS Safety Report 18409503 (Version 1)
Quarter: 2020Q4

REPORT INFORMATION
  Report Type: Spontaneous
  Country: US (occurrence: US)
  Receive Date: 20201021
  Receipt Date: 20201021
  Transmission Date: 20210114
  Serious: No
  Sender: FDA-Public Use
  Company Number: None

PATIENT
  Age: 62 Year
  Sex: Female

DRUGS (23)
  1. IBRANCE [Suspect]
     Active Substance: PALBOCICLIB
     Indication: BREAST CANCER FEMALE
     Route: 048
     Dates: start: 20180908
  2. HYDROCHLOROTHIAZIDE, [Concomitant]
  3. ASPIRIN, [Concomitant]
  4. LANTUS , [Concomitant]
  5. MOTRIN [Concomitant]
     Active Substance: IBUPROFEN
  6. SPIRONOLACTONE, [Concomitant]
  7. TAMSULOSIN HCL, [Concomitant]
  8. POTASSIUM, [Concomitant]
  9. LORATADINE, [Concomitant]
  10. OMEPRAZOLE, [Concomitant]
  11. LOSARTAN POTASSIUM, [Concomitant]
  12. APIDRA, [Concomitant]
  13. CHLORTHALIDONE, [Concomitant]
  14. MONTELUKAST SODIUM, [Concomitant]
  15. CETIRIZINE HCL, [Concomitant]
  16. GABAPENTIN , [Concomitant]
  17. BETHANECHOL CHLORIDE. [Concomitant]
     Active Substance: BETHANECHOL CHLORIDE
  18. FUROSEMIDE, [Concomitant]
  19. SIMVASTATIN, [Concomitant]
  20. METOPROLOL SUCCINATE ER [Concomitant]
     Active Substance: METOPROLOL SUCCINATE
  21. LEVOTHYROXINE SODIUM , [Concomitant]
  22. AMLODIPINE BESYLATE, [Concomitant]
  23. ARIPIPRAZOLE, [Concomitant]

REACTIONS (2)
  - Cerebrovascular accident [None]
  - Fall [None]
